FAERS Safety Report 5714456-5 (Version None)
Quarter: 2008Q2

REPORT INFORMATION
  Report Type: 
  Country: None (occurrence: None)
  Receive Date: 20080423
  Receipt Date: 20080415
  Transmission Date: 20081010
  Serious: Yes (Death)
  Sender: FDA-Public Use
  Company Number: US-AVENTIS-200810130US

PATIENT
  Sex: Male
  Weight: 90.7 kg

DRUGS (2)
  1. ALLEGRA D 24 HOUR [Suspect]
     Dosage: DOSE: 1 PILL
     Route: 048
     Dates: start: 20071101, end: 20071208
  2. ALLEGRA D 24 HOUR [Suspect]
     Dosage: DOSE: 1 PILL
     Route: 048
     Dates: start: 20071101, end: 20071208

REACTIONS (3)
  - ARTERIAL OCCLUSIVE DISEASE [None]
  - CARDIOMEGALY [None]
  - MYOCARDIAL INFARCTION [None]
